FAERS Safety Report 25944676 (Version 1)
Quarter: 2025Q4

REPORT INFORMATION
  Report Type: Report from Study
  Country: US (occurrence: US)
  Receive Date: 20251021
  Receipt Date: 20251021
  Transmission Date: 20260117
  Serious: Yes (Other)
  Sender: ABBVIE
  Company Number: US-ABBVIE-6305012

PATIENT
  Age: 58 Year
  Sex: Male

DRUGS (1)
  1. RINVOQ [Suspect]
     Active Substance: UPADACITINIB
     Indication: Dermatitis atopic
     Route: 048
     Dates: start: 20241030

REACTIONS (10)
  - Neck pain [Unknown]
  - Staphylococcal infection [Unknown]
  - Tooth abscess [Not Recovered/Not Resolved]
  - Pain in extremity [Unknown]
  - Pain [Unknown]
  - Arthralgia [Unknown]
  - Artificial crown procedure [Unknown]
  - Device related infection [Not Recovered/Not Resolved]
  - Impaired healing [Unknown]
  - Road traffic accident [Unknown]

NARRATIVE: CASE EVENT DATE: 20241001
